FAERS Safety Report 10695246 (Version 1)
Quarter: 2015Q1

REPORT INFORMATION
  Report Type: Spontaneous
  Country: NL (occurrence: None)
  Receive Date: 20150106
  Receipt Date: 20150106
  Transmission Date: 20150721
  Serious: Yes (Hospitalization)
  Sender: FDA-Public Use
  Company Number: NL2014GSK040019

PATIENT
  Sex: Female

DRUGS (1)
  1. PAROXETINE (PAROXETINE HYDROCHLORIDE) TABLET [Suspect]
     Active Substance: PAROXETINE\PAROXETINE HYDROCHLORIDE
     Indication: DEPRESSION
     Route: 064
     Dates: start: 2014, end: 20141107

REACTIONS (2)
  - Maternal drugs affecting foetus [None]
  - Neonatal respiratory depression [None]

NARRATIVE: CASE EVENT DATE: 20141107
